FAERS Safety Report 10697496 (Version 4)
Quarter: 2015Q1

REPORT INFORMATION
  Report Type: Spontaneous
  Country: FR (occurrence: FR)
  Receive Date: 20150108
  Receipt Date: 20150211
  Transmission Date: 20150721
  Serious: Yes (Other)
  Sender: FDA-Public Use
  Company Number: FR-SA-2014SA166872

PATIENT
  Age: 37 Year
  Sex: Female

DRUGS (3)
  1. CERAZETTE [Concomitant]
     Active Substance: DESOGESTREL
     Indication: ORAL CONTRACEPTION
  2. CETIRIZINE [Concomitant]
     Active Substance: CETIRIZINE HYDROCHLORIDE
     Dosage: STRENGTH: 10 MG
  3. AUBAGIO [Suspect]
     Active Substance: TERIFLUNOMIDE
     Indication: RELAPSING-REMITTING MULTIPLE SCLEROSIS
     Route: 065
     Dates: start: 20141201, end: 20141228

REACTIONS (6)
  - Pruritus [Recovered/Resolved]
  - Urticaria [Recovered/Resolved]
  - Nausea [Recovered/Resolved]
  - Ophthalmic herpes zoster [Recovered/Resolved]
  - Abdominal pain upper [Recovered/Resolved]
  - Influenza [Unknown]

NARRATIVE: CASE EVENT DATE: 20141201
